FAERS Safety Report 23703492 (Version 2)
Quarter: 2024Q2

REPORT INFORMATION
  Report Type: Spontaneous
  Country: US (occurrence: US)
  Receive Date: 20240403
  Receipt Date: 20240409
  Transmission Date: 20240716
  Serious: No
  Sender: FDA-Public Use
  Company Number: US-PFIZER INC-202400074496

PATIENT
  Age: 61 Year
  Sex: Female
  Weight: 90.72 kg

DRUGS (3)
  1. PAXLOVID [Interacting]
     Active Substance: NIRMATRELVIR\RITONAVIR
     Indication: COVID-19 treatment
     Dosage: [NIRMATRELVIR 300 MG]/[RITONAVIR 100 MG]; 2X/DAY
     Dates: start: 20230814, end: 20230818
  2. SYMBICORT [Interacting]
     Active Substance: BUDESONIDE\FORMOTEROL FUMARATE DIHYDRATE
     Indication: Asthma
     Dosage: 2 DF, 2X/DAY; 2 PUFFS BY MOUTH TWICE DAILY WITH VAPOR
     Route: 048
     Dates: start: 202006, end: 20230818
  3. DEXAMETHASONE [Concomitant]
     Active Substance: DEXAMETHASONE
     Indication: Inflammation
     Dosage: 1 DF
     Route: 048
     Dates: start: 20230814, end: 20230820

REACTIONS (6)
  - Drug interaction [Unknown]
  - Euphoric mood [Unknown]
  - Blood disorder [Recovered/Resolved]
  - Contusion [Recovered/Resolved]
  - Therapeutic response unexpected [Unknown]
  - Expired product administered [Unknown]

NARRATIVE: CASE EVENT DATE: 20230801
